FAERS Safety Report 23798287 (Version 1)
Quarter: 2024Q2

REPORT INFORMATION
  Report Type: Spontaneous
  Country: RU (occurrence: RU)
  Receive Date: 20240430
  Receipt Date: 20240430
  Transmission Date: 20240715
  Serious: Yes (Other)
  Sender: FDA-Public Use
  Company Number: RU-BAYER-2024A059014

PATIENT
  Age: 40 Year
  Sex: Female
  Weight: 67 kg

DRUGS (2)
  1. DIENOGEST\ESTRADIOL VALERATE [Suspect]
     Active Substance: DIENOGEST\ESTRADIOL VALERATE
     Indication: Contraception
     Dosage: UNK
     Route: 048
     Dates: start: 202310, end: 202403
  2. DIENOGEST\ESTRADIOL VALERATE [Suspect]
     Active Substance: DIENOGEST\ESTRADIOL VALERATE
     Indication: Adenomyosis

REACTIONS (4)
  - Hepatotoxicity [None]
  - Illness [None]
  - Abdominal discomfort [None]
  - Transaminases increased [None]
